FAERS Safety Report 10851990 (Version 1)
Quarter: 2015Q1

REPORT INFORMATION
  Report Type: Spontaneous
  Country: US (occurrence: US)
  Receive Date: 20150222
  Receipt Date: 20150222
  Transmission Date: 20150721
  Serious: No
  Sender: FDA-Public Use
  Company Number: US-ALLERGAN-1423685US

PATIENT
  Age: 55 Year
  Sex: Female

DRUGS (9)
  1. LEVOTHYROXINE [Concomitant]
     Active Substance: LEVOTHYROXINE
     Indication: THYROID DISORDER
  2. ACARBOSE. [Concomitant]
     Active Substance: ACARBOSE
     Indication: BLOOD GLUCOSE DECREASED
  3. XANAX [Concomitant]
     Active Substance: ALPRAZOLAM
  4. PRAVASTATIN [Concomitant]
     Active Substance: PRAVASTATIN\PRAVASTATIN SODIUM
     Indication: BLOOD CHOLESTEROL
  5. HYDROXYZINE [Concomitant]
     Active Substance: HYDROXYZINE\HYDROXYZINE HYDROCHLORIDE
     Indication: ECZEMA
  6. TOPAMAX [Concomitant]
     Active Substance: TOPIRAMATE
  7. ALLEGRA [Concomitant]
     Active Substance: FEXOFENADINE HYDROCHLORIDE
  8. BOTOX [Suspect]
     Active Substance: ONABOTULINUMTOXINA
     Indication: MUSCLE SPASTICITY
     Dosage: 100 UNITS, SINGLE
     Route: 030
     Dates: start: 20141013, end: 20141013
  9. NASONEX [Concomitant]
     Active Substance: MOMETASONE FUROATE

REACTIONS (1)
  - Dyspnoea [Unknown]
